FAERS Safety Report 6421491-0 (Version None)
Quarter: 2009Q4

REPORT INFORMATION
  Report Type: 
  Country: None (occurrence: None)
  Receive Date: 20091030
  Receipt Date: 20091029
  Transmission Date: 20100525
  Serious: Yes (Hospitalization, Other)
  Sender: FDA-Public Use
  Company Number: US-PFIZER INC-2009263106

PATIENT
  Sex: Male
  Weight: 106.5 kg

DRUGS (4)
  1. ZYVOX [Suspect]
     Indication: STAPHYLOCOCCAL INFECTION
     Dosage: 600 MG, 2X/DAY
     Route: 048
     Dates: start: 20050501, end: 20050801
  2. VERAPAMIL HCL [Concomitant]
     Indication: HYPERTENSION
     Dosage: UNK
  3. DOXAZOSIN [Concomitant]
     Dosage: UNK
  4. LUPRON [Concomitant]
     Indication: PROSTATE CANCER
     Dosage: UNK
     Route: 042

REACTIONS (5)
  - FIBROMYALGIA [None]
  - MYOCARDIAL INFARCTION [None]
  - NEUROPATHY PERIPHERAL [None]
  - OVERDOSE [None]
  - PALPITATIONS [None]
